FAERS Safety Report 10233636 (Version 1)
Quarter: 2014Q2

REPORT INFORMATION
  Report Type: Spontaneous
  Country: US (occurrence: None)
  Receive Date: 20140611
  Receipt Date: 20140611
  Transmission Date: 20141212
  Serious: No
  Sender: FDA-Public Use
  Company Number: None

PATIENT
  Sex: Female

DRUGS (2)
  1. ENBREL 50 MG AMGEN [Suspect]
     Indication: RHEUMATOID ARTHRITIS
     Dosage: 50MG?Q 7 DAYS?SQ
     Dates: start: 20090127, end: 201405
  2. ENBREL 50 MG AMGEN [Suspect]
     Indication: INFLAMMATION
     Dosage: 50MG?Q 7 DAYS?SQ
     Dates: start: 20090127, end: 201405

REACTIONS (1)
  - Urticaria [None]
